FAERS Safety Report 8189831-2 (Version None)
Quarter: 2012Q1

REPORT INFORMATION
  Report Type: 
  Country: None (occurrence: None)
  Receive Date: 20120307
  Receipt Date: 20110908
  Transmission Date: 20120608
  Serious: No
  Sender: FDA-Public Use
  Company Number: US-GLAXOSMITHKLINE-A0943897A

PATIENT
  Age: 69 Year
  Sex: Female

DRUGS (10)
  1. FLUTICASONE PROPIONATE [Concomitant]
  2. ALLEGRA [Concomitant]
  3. ADVAIR DISKUS 100/50 [Concomitant]
  4. LEXAPRO [Concomitant]
  5. REQUIP [Suspect]
     Indication: RESTLESS LEGS SYNDROME
     Dosage: 2MG PER DAY
     Route: 048
     Dates: start: 20110901
  6. CRESTOR [Concomitant]
  7. TOPAMAX [Concomitant]
  8. PRILOSEC [Concomitant]
  9. SINGULAIR [Concomitant]
  10. OTC VITAMINS [Concomitant]

REACTIONS (3)
  - PARAESTHESIA [None]
  - HEADACHE [None]
  - FATIGUE [None]
